FAERS Safety Report 16739017 (Version 2)
Quarter: 2019Q3

REPORT INFORMATION
  Report Type: Spontaneous
  Country: AU (occurrence: AU)
  Receive Date: 20190826
  Receipt Date: 20190916
  Transmission Date: 20191005
  Serious: Yes (Other)
  Sender: FDA-Public Use
  Company Number: AU-AMGEN-AUSSP2019133688

PATIENT
  Age: 38 Year
  Sex: Male
  Weight: 71 kg

DRUGS (2)
  1. PROLIA [Suspect]
     Active Substance: DENOSUMAB
     Indication: OSTEOPOROSIS
     Dosage: 60 MILLIGRAM, Q6MO
     Route: 058
     Dates: start: 20180823
  2. CARBIMAZOLE [Concomitant]
     Active Substance: CARBIMAZOLE
     Indication: BASEDOW^S DISEASE
     Dosage: 15 MILLIGRAM, TID
     Dates: start: 201806

REACTIONS (1)
  - Lumbar vertebral fracture [Not Recovered/Not Resolved]

NARRATIVE: CASE EVENT DATE: 20190116
